FAERS Safety Report 6453986-8 (Version None)
Quarter: 2009Q4

REPORT INFORMATION
  Report Type: 
  Country: None (occurrence: None)
  Receive Date: 20091117
  Receipt Date: 20091023
  Transmission Date: 20100525
  Serious: Yes (Other)
  Sender: FDA-Public Use
  Company Number: AUR-APL-2009-01198

PATIENT
  Age: 26 Year
  Sex: Male

DRUGS (5)
  1. LAMOTRIGINE [Suspect]
     Indication: BIPOLAR DISORDER
  2. SERTRALINE HCL [Suspect]
     Indication: BIPOLAR DISORDER
  3. BUPROPION HCL [Suspect]
     Indication: BIPOLAR DISORDER
  4. CLONAZEPAM [Suspect]
     Indication: BIPOLAR DISORDER
  5. LITHIUM CARBONATE [Suspect]
     Indication: BIPOLAR DISORDER
     Dosage: 900MG, DAILY

REACTIONS (4)
  - BRUGADA SYNDROME [None]
  - ELECTROCARDIOGRAM ST-T SEGMENT ABNORMAL [None]
  - UNRESPONSIVE TO STIMULI [None]
  - VENTRICULAR FIBRILLATION [None]
